FAERS Safety Report 5375212-3 (Version None)
Quarter: 2007Q2

REPORT INFORMATION
  Report Type: 
  Country: None (occurrence: None)
  Receive Date: 20070629
  Receipt Date: 20070620
  Transmission Date: 20071010
  Serious: Yes (Other)
  Sender: FDA-Public Use
  Company Number: PHBS2007IT10638

PATIENT
  Age: 73 Year
  Sex: Female

DRUGS (1)
  1. FEMARA [Suspect]
     Indication: BREAST CANCER
     Route: 065
     Dates: start: 20041001, end: 20070501

REACTIONS (3)
  - GASTRIC CANCER [None]
  - HEPATIC LESION [None]
  - HEPATIC MASS [None]
